FAERS Safety Report 5969728-6 (Version None)
Quarter: 2008Q4

REPORT INFORMATION
  Report Type: 
  Country: None (occurrence: None)
  Receive Date: 20081126
  Receipt Date: 20081118
  Transmission Date: 20090506
  Serious: Yes (Other)
  Sender: FDA-Public Use
  Company Number: FR-PFIZER INC-2008090180

PATIENT
  Sex: Male
  Weight: 62 kg

DRUGS (2)
  1. RELPAX [Suspect]
     Indication: MIGRAINE
     Dates: start: 20081015, end: 20081016
  2. SPEDIFEN [Concomitant]
     Indication: MIGRAINE
     Dates: start: 20081010

REACTIONS (5)
  - AMNESIA [None]
  - DELIRIUM [None]
  - DISORIENTATION [None]
  - DISTURBANCE IN ATTENTION [None]
  - EAR PAIN [None]
